FAERS Safety Report 8199205-6 (Version None)
Quarter: 2012Q1

REPORT INFORMATION
  Report Type: 
  Country: None (occurrence: None)
  Receive Date: 20120309
  Receipt Date: 20120302
  Transmission Date: 20120608
  Serious: Yes (Other)
  Sender: FDA-Public Use
  Company Number: US-US-EMD SERONO, INC.-7116791

PATIENT
  Sex: Male

DRUGS (3)
  1. TYLENOL [Concomitant]
     Indication: PREMEDICATION
  2. REBIF [Suspect]
     Route: 058
     Dates: start: 20100101
  3. REBIF [Suspect]
     Indication: PRODUCT USED FOR UNKNOWN INDICATION
     Route: 058
     Dates: start: 20091209

REACTIONS (2)
  - CEREBROVASCULAR ACCIDENT [None]
  - LABORATORY TEST ABNORMAL [None]
